FAERS Safety Report 4906135-9 (Version None)
Quarter: 2006Q1

REPORT INFORMATION
  Report Type: 
  Country: None (occurrence: None)
  Receive Date: 20060207
  Receipt Date: 20060207
  Transmission Date: 20060701
  Serious: Yes (Death)
  Sender: FDA-Public Use
  Company Number: None

PATIENT
  Sex: Male
  Weight: 82 kg

DRUGS (2)
  1. CASODEX [Suspect]
     Indication: PROSTATE CANCER
     Dosage: 81000 MG
     Dates: start: 20010517, end: 20051023
  2. CASODEX [Suspect]
     Indication: PROSTATE CANCER
     Dosage: 81000 MG
     Dates: start: 20051023

REACTIONS (3)
  - ASPIRATION [None]
  - DEMENTIA ALZHEIMER'S TYPE [None]
  - PNEUMONIA [None]
